FAERS Safety Report 14573746 (Version 1)
Quarter: 2018Q1

REPORT INFORMATION
  Report Type: Spontaneous
  Country: EG (occurrence: EG)
  Receive Date: 20180226
  Receipt Date: 20180226
  Transmission Date: 20180509
  Serious: Yes (Hospitalization, Other)
  Sender: FDA-Public Use
  Company Number: PHHY2018EG017270

PATIENT
  Age: 67 Year
  Sex: Male

DRUGS (10)
  1. PROGRAF [Concomitant]
     Active Substance: TACROLIMUS\TACROLIMUS ANHYDROUS
     Indication: PRODUCT USED FOR UNKNOWN INDICATION
     Dosage: 1 MG, QD
     Route: 065
  2. MYFORTIC [Suspect]
     Active Substance: MYCOPHENOLATE SODIUM
     Dosage: 1440 MG, QD
     Route: 065
     Dates: start: 20180210
  3. CERTICAN [Suspect]
     Active Substance: EVEROLIMUS
     Indication: LIVER TRANSPLANT
     Dosage: 1 MG, BID
     Route: 048
  4. MYFORTIC [Suspect]
     Active Substance: MYCOPHENOLATE SODIUM
     Dosage: 2160 MG, TID
     Route: 065
  5. SOLUPRED (PREDNISOLONE) [Suspect]
     Active Substance: PREDNISOLONE
     Indication: PRODUCT USED FOR UNKNOWN INDICATION
     Dosage: 10 MG, QD
     Route: 065
  6. MYFORTIC [Suspect]
     Active Substance: MYCOPHENOLATE SODIUM
     Indication: LIVER TRANSPLANT
     Dosage: 720 MG, BID
     Route: 065
  7. LIPANTHYL [Suspect]
     Active Substance: FENOFIBRATE
     Indication: PRODUCT USED FOR UNKNOWN INDICATION
     Dosage: 300 MG, QD
     Route: 065
  8. SOLUPRED (PREDNISOLONE) [Suspect]
     Active Substance: PREDNISOLONE
     Dosage: 60 MG, QD
     Route: 065
  9. ASPIRIN. [Suspect]
     Active Substance: ASPIRIN
     Indication: PRODUCT USED FOR UNKNOWN INDICATION
     Dosage: 100 MG, QD
     Route: 065
  10. SOLUPRED (PREDNISOLONE) [Suspect]
     Active Substance: PREDNISOLONE
     Dosage: 50 MG, QD
     Route: 065

REACTIONS (12)
  - Liver transplant rejection [Unknown]
  - Lower respiratory tract infection [Unknown]
  - Fatigue [Unknown]
  - Pyrexia [Unknown]
  - Urine output decreased [Unknown]
  - Cough [Unknown]
  - Renal impairment [Recovering/Resolving]
  - Jaundice [Unknown]
  - Chromaturia [Unknown]
  - Upper respiratory tract infection [Recovered/Resolved]
  - Hepatic enzyme increased [Recovering/Resolving]
  - Abnormal faeces [Unknown]

NARRATIVE: CASE EVENT DATE: 20180108
